FAERS Safety Report 6295585-7 (Version None)
Quarter: 2009Q3

REPORT INFORMATION
  Report Type: 
  Country: None (occurrence: None)
  Receive Date: 20090731
  Receipt Date: 20090716
  Transmission Date: 20100115
  Serious: Yes (Hospitalization)
  Sender: FDA-Public Use
  Company Number: ADE2009-0756

PATIENT
  Age: 37 Year
  Sex: Male

DRUGS (2)
  1. PAROXETINE HCL [Suspect]
     Dosage: 28 TABLETS - X1 - ORAL
     Route: 048
     Dates: start: 20090205
  2. ALPRAZOLAM [Suspect]
     Dosage: 24 TABLETS X1 - ORAL
     Route: 048
     Dates: start: 20090205

REACTIONS (5)
  - COMA [None]
  - DRUG TOXICITY [None]
  - INTENTIONAL DRUG MISUSE [None]
  - LOSS OF CONSCIOUSNESS [None]
  - LUNG DISORDER [None]
